FAERS Safety Report 19007378 (Version 1)
Quarter: 2021Q1

REPORT INFORMATION
  Report Type: Spontaneous
  Country: US (occurrence: US)
  Receive Date: 20210315
  Receipt Date: 20210315
  Transmission Date: 20210420
  Serious: Yes (Hospitalization, Other)
  Sender: FDA-Public Use
  Company Number: US-JNJFOC-20200134300

PATIENT
  Age: 69 Year
  Sex: Female

DRUGS (18)
  1. IMODIUM [Suspect]
     Active Substance: LOPERAMIDE HYDROCHLORIDE
     Indication: PRODUCT USED FOR UNKNOWN INDICATION
     Route: 065
  2. CARVEDILOL. [Concomitant]
     Active Substance: CARVEDILOL
  3. LEVETIRACETAM. [Concomitant]
     Active Substance: LEVETIRACETAM
  4. ONDANSETRON [Concomitant]
     Active Substance: ONDANSETRON
  5. ALCLOMETASONE DIPROPIONATE. [Concomitant]
     Active Substance: ALCLOMETASONE DIPROPIONATE
  6. PANTOPRAZOLE [Concomitant]
     Active Substance: PANTOPRAZOLE
  7. ALBUTEROL SULFATE. [Concomitant]
     Active Substance: ALBUTEROL SULFATE
  8. ROSUVASTATIN CALCIUM. [Concomitant]
     Active Substance: ROSUVASTATIN CALCIUM
  9. GILOTRIF [Suspect]
     Active Substance: AFATINIB
     Indication: NON-SMALL CELL LUNG CANCER
     Route: 048
     Dates: start: 201904
  10. LATANOPROST. [Concomitant]
     Active Substance: LATANOPROST
  11. BUMETANIDE. [Concomitant]
     Active Substance: BUMETANIDE
  12. FUROSEMIDE. [Concomitant]
     Active Substance: FUROSEMIDE
  13. RANITIDINE HYDROCHLORIDE. [Concomitant]
     Active Substance: RANITIDINE HYDROCHLORIDE
     Indication: PRODUCT USED FOR UNKNOWN INDICATION
  14. GILOTRIF [Suspect]
     Active Substance: AFATINIB
     Route: 048
  15. THYRAR [Concomitant]
  16. MUPIROCINUM [Concomitant]
  17. PREDNISONE. [Concomitant]
     Active Substance: PREDNISONE
  18. VENTOLIN [Concomitant]
     Active Substance: ALBUTEROL SULFATE

REACTIONS (17)
  - Radiation pneumonitis [Unknown]
  - Skin ulcer [Unknown]
  - Infection [Recovered/Resolved]
  - Dysgeusia [Unknown]
  - Productive cough [Not Recovered/Not Resolved]
  - Glaucoma [Not Recovered/Not Resolved]
  - Rash [Recovered/Resolved]
  - Cataract [Not Recovered/Not Resolved]
  - Mouth ulceration [Unknown]
  - Diarrhoea [Not Recovered/Not Resolved]
  - Constipation [Unknown]
  - Pain in extremity [Not Recovered/Not Resolved]
  - Oedema peripheral [Recovered/Resolved]
  - Pneumonia [Unknown]
  - Ageusia [Unknown]
  - Skin fissures [Recovered/Resolved]
  - Rash [Unknown]

NARRATIVE: CASE EVENT DATE: 201904
